FAERS Safety Report 16368805 (Version 1)
Quarter: 2019Q2

REPORT INFORMATION
  Report Type: Spontaneous
  Country: US (occurrence: US)
  Receive Date: 20190423
  Receipt Date: 20190423
  Transmission Date: 20190711
  Serious: Yes (Hospitalization)
  Sender: FDA-Public Use
  Company Number: None

PATIENT
  Age: 68 Year
  Sex: Male
  Weight: 95.12 kg

DRUGS (1)
  1. SEVOFLURANE. [Suspect]
     Active Substance: SEVOFLURANE
     Indication: SURGERY
     Dates: start: 20190129, end: 20190129

REACTIONS (3)
  - Procedural complication [None]
  - Hyperthermia malignant [None]
  - End-tidal CO2 increased [None]

NARRATIVE: CASE EVENT DATE: 20190129
